FAERS Safety Report 7481614-1 (Version None)
Quarter: 2011Q2

REPORT INFORMATION
  Report Type: 
  Country: None (occurrence: None)
  Receive Date: 20110516
  Receipt Date: 20110509
  Transmission Date: 20111010
  Serious: Yes (Death)
  Sender: FDA-Public Use
  Company Number: JP-ROCHE-767872

PATIENT
  Age: 77 Year
  Sex: Female
  Weight: 57 kg

DRUGS (15)
  1. AVASTIN [Suspect]
     Indication: COLON CANCER METASTATIC
     Route: 041
     Dates: start: 20091218, end: 20101116
  2. OXALIPLATIN [Suspect]
     Indication: COLON CANCER METASTATIC
     Route: 041
     Dates: start: 20091218, end: 20100917
  3. OXINORM [Concomitant]
     Dosage: DOSE FORM: POWDERED MEDICINE
     Route: 048
  4. LOXOPROFEN SODIUM [Concomitant]
  5. FLUOROURACIL [Suspect]
     Route: 040
     Dates: start: 20101210, end: 20110301
  6. LEUCOVORIN CALCIUM [Suspect]
     Route: 041
     Dates: start: 20101210, end: 20110304
  7. AVASTIN [Suspect]
     Route: 041
     Dates: start: 20101210, end: 20110304
  8. MAGMITT [Concomitant]
     Route: 048
  9. FLUOROURACIL [Suspect]
     Route: 040
     Dates: start: 20091218, end: 20101101
  10. FLUOROURACIL [Suspect]
     Route: 040
     Dates: start: 20101210, end: 20110304
  11. LEUCOVORIN CALCIUM [Suspect]
     Indication: COLON CANCER METASTATIC
     Route: 041
     Dates: start: 20091218, end: 20101116
  12. OXYCONTIN [Concomitant]
     Dosage: DOSE FORM:SUSTAINED-RELEASE TABLET.
     Route: 048
  13. FLUOROURACIL [Suspect]
     Indication: COLON CANCER METASTATIC
     Route: 040
     Dates: start: 20091218, end: 20101116
  14. PRIMPERAN TAB [Concomitant]
     Route: 048
  15. IRINOTECAN HYDROCHLORIDE [Suspect]
     Indication: COLON CANCER METASTATIC
     Route: 041
     Dates: start: 20101210, end: 20110304

REACTIONS (3)
  - INTERSTITIAL LUNG DISEASE [None]
  - STOMATITIS [None]
  - NEUROPATHY PERIPHERAL [None]
